FAERS Safety Report 22097737 (Version 3)
Quarter: 2023Q2

REPORT INFORMATION
  Report Type: Spontaneous
  Country: DE (occurrence: DE)
  Receive Date: 20230315
  Receipt Date: 20230405
  Transmission Date: 20230721
  Serious: Yes (Death, Hospitalization)
  Sender: FDA-Public Use
  Company Number: DE-MEDAC-2023000266

PATIENT
  Age: 72 Year
  Sex: Female

DRUGS (1)
  1. METHOTREXATE SODIUM [Suspect]
     Active Substance: METHOTREXATE SODIUM
     Dosage: FAMILY DOCTOR HAD PRESCRIBED MTX ONCE A WEEK - BUT IN THE CLINIC A DAILY INTAKE WAS RECORDED

REACTIONS (3)
  - Accidental overdose [Fatal]
  - Inappropriate schedule of product administration [Fatal]
  - Death [Fatal]

NARRATIVE: CASE EVENT DATE: 20200101
